FAERS Safety Report 6095228-1 (Version None)
Quarter: 2009Q1

REPORT INFORMATION
  Report Type: 
  Country: None (occurrence: None)
  Receive Date: 20090227
  Receipt Date: 20080228
  Transmission Date: 20090719
  Serious: No
  Sender: FDA-Public Use
  Company Number: A0709984A

PATIENT
  Age: 54 Year
  Sex: Female

DRUGS (3)
  1. LAMICTAL [Suspect]
     Indication: VERTIGO
     Dosage: 50MG TWICE PER DAY
     Route: 048
     Dates: start: 20080128
  2. LORAZEPAM [Concomitant]
  3. CALCIUM + D [Concomitant]

REACTIONS (2)
  - ABDOMINAL PAIN UPPER [None]
  - HEADACHE [None]
